FAERS Safety Report 9725584 (Version 1)
Quarter: 2013Q4

REPORT INFORMATION
  Report Type: Spontaneous
  Country: US (occurrence: None)
  Receive Date: 20131202
  Receipt Date: 20131202
  Transmission Date: 20140711
  Serious: Yes (Life-Threatening, Hospitalization)
  Sender: FDA-Public Use
  Company Number: None

PATIENT
  Age: 53 Year
  Sex: Male
  Weight: 74.39 kg

DRUGS (7)
  1. CYCLOPENTOLATE HCL [Suspect]
     Indication: BLEPHAROSPASM
     Route: 047
  2. CYCLOPENTOLATE HCL [Suspect]
     Indication: SCLERAL BUCKLING SURGERY
     Route: 047
  3. MELATONIN [Concomitant]
  4. BENADRYL [Concomitant]
  5. FISH OIL [Concomitant]
  6. TYLENOL EXTRA STRENGTH [Concomitant]
  7. ADVIL [Concomitant]

REACTIONS (5)
  - Dysphonia [None]
  - Speech disorder [None]
  - Wheezing [None]
  - Incoherent [None]
  - Sputum retention [None]
